FAERS Safety Report 26002684 (Version 1)
Quarter: 2025Q4

REPORT INFORMATION
  Report Type: Spontaneous
  Country: MX (occurrence: MX)
  Receive Date: 20251106
  Receipt Date: 20251106
  Transmission Date: 20260117
  Serious: Yes (Life-Threatening, Other)
  Sender: STRIDES
  Company Number: MX-STRIDES ARCOLAB LIMITED-2025SP013757

PATIENT
  Age: 11 Year
  Sex: Male

DRUGS (6)
  1. METHOTREXATE [Suspect]
     Active Substance: METHOTREXATE
     Indication: Burkitt^s lymphoma stage IV
     Dosage: 5 GRAM PER SQUARE METRE, QD
     Route: 065
  2. IFOSFAMIDE [Concomitant]
     Active Substance: IFOSFAMIDE
     Indication: Burkitt^s lymphoma stage IV
     Dosage: 800 MILLIGRAM/SQ. METER, QD (AFTER THE FIRST CYCLE)
     Route: 065
  3. MESNA [Concomitant]
     Active Substance: MESNA
     Indication: Burkitt^s lymphoma stage IV
     Dosage: UNK
     Route: 065
  4. VINCRISTINE [Concomitant]
     Active Substance: VINCRISTINE
     Indication: Burkitt^s lymphoma stage IV
     Dosage: 1.5 MILLIGRAM/SQ. METER, QD
     Route: 065
  5. CYTARABINE [Concomitant]
     Active Substance: CYTARABINE
     Indication: Burkitt^s lymphoma stage IV
     Dosage: 150 MILLIGRAM/SQ. METER, QD
     Route: 065
  6. LEUCOVORIN [Concomitant]
     Active Substance: LEUCOVORIN\LEUCOVORIN CALCIUM
     Indication: Burkitt^s lymphoma stage IV
     Dosage: 15 MILLIGRAM/SQ. METER, EVERY 6 HRS
     Route: 065

REACTIONS (2)
  - Mucosal inflammation [Recovered/Resolved]
  - Mucocutaneous toxicity [Recovered/Resolved]
